FAERS Safety Report 7736703-0 (Version None)
Quarter: 2011Q3

REPORT INFORMATION
  Report Type: 
  Country: None (occurrence: None)
  Receive Date: 20110902
  Receipt Date: 20110609
  Transmission Date: 20111222
  Serious: Yes (Hospitalization)
  Sender: FDA-Public Use
  Company Number: NXG-11-003

PATIENT
  Sex: Female

DRUGS (1)
  1. POLYETHYLENE GLYCOL 3350 [Suspect]
     Indication: CONSTIPATION
     Dosage: 17GM IN 8OZ WATER/DAY

REACTIONS (3)
  - ASTHENIA [None]
  - VOMITING [None]
  - DEHYDRATION [None]
